FAERS Safety Report 5120690-8 (Version None)
Quarter: 2006Q4

REPORT INFORMATION
  Report Type: 
  Country: None (occurrence: None)
  Receive Date: 20061004
  Receipt Date: 20060829
  Transmission Date: 20070319
  Serious: Yes (Other)
  Sender: FDA-Public Use
  Company Number: GB-BOEHRINGER INGELHEIM GMBH, GERMANY-2006-UK-03692UK

PATIENT

DRUGS (3)
  1. VIRAMUNE [Suspect]
  2. COMBIVIR [Suspect]
     Dosage: ROUTE TRANSPLACENTAL
  3. MEDICINALPRODUCT NOT SPECIFIED BY SENDER [Concomitant]

REACTIONS (3)
  - ASCITES [None]
  - FOETAL DISORDER [None]
  - PERICARDIAL EFFUSION [None]
